FAERS Safety Report 18653527 (Version 1)
Quarter: 2020Q4

REPORT INFORMATION
  Report Type: Spontaneous
  Country: US (occurrence: US)
  Receive Date: 20201222
  Receipt Date: 20201222
  Transmission Date: 20210114
  Serious: Yes (Hospitalization)
  Sender: FDA-Public Use
  Company Number: None

PATIENT
  Age: 30 Year
  Sex: Male
  Weight: 108.9 kg

DRUGS (1)
  1. CASIRIVIMAB-IMDEVIMAB [Suspect]
     Active Substance: CASIRIVIMAB\IMDEVIMAB
     Indication: COVID-19
     Dosage: ?          OTHER FREQUENCY:ONCE;?
     Route: 042
     Dates: start: 20201214, end: 20201214

REACTIONS (4)
  - Nausea [None]
  - Headache [None]
  - Pain [None]
  - Asthenia [None]

NARRATIVE: CASE EVENT DATE: 20201217
